FAERS Safety Report 10559449 (Version 1)
Quarter: 2014Q4

REPORT INFORMATION
  Report Type: Spontaneous
  Country: US (occurrence: None)
  Receive Date: 20141031
  Receipt Date: 20141031
  Transmission Date: 20150529
  Serious: Yes (Death)
  Sender: FDA-Public Use
  Company Number: None

PATIENT
  Age: 60 Year
  Sex: Male

DRUGS (1)
  1. TASIGNA [Suspect]
     Active Substance: NILOTINIB
     Indication: NEOPLASM MALIGNANT
     Dosage: 2 CAPSULES BID ORAL??SEPT  2014 TO DEATH IN OCT 2014
     Route: 048
     Dates: start: 201409, end: 201410

REACTIONS (4)
  - Hepatic failure [None]
  - Disease complication [None]
  - Neoplasm malignant [None]
  - Renal failure [None]

NARRATIVE: CASE EVENT DATE: 20141029
